FAERS Safety Report 8010881-0 (Version None)
Quarter: 2011Q4

REPORT INFORMATION
  Report Type: 
  Country: None (occurrence: None)
  Receive Date: 20111228
  Receipt Date: 20111216
  Transmission Date: 20120403
  Serious: Yes (Other)
  Sender: FDA-Public Use
  Company Number: JP-ROCHE-1008470

PATIENT
  Sex: Female
  Weight: 50 kg

DRUGS (13)
  1. OXAROL [Concomitant]
     Route: 048
  2. SILECE [Concomitant]
     Route: 048
  3. FOSRENOL [Concomitant]
     Route: 048
  4. AMOBAN [Concomitant]
     Route: 048
  5. MUCOSTA [Concomitant]
     Route: 048
  6. AMEZINIUM METILSULFATE [Concomitant]
     Route: 048
  7. DOPS [Concomitant]
     Route: 048
  8. MIRCERA [Suspect]
     Indication: NEPHROGENIC ANAEMIA
     Route: 042
     Dates: start: 20110806, end: 20110910
  9. ALLOPURINOL [Concomitant]
     Route: 048
  10. CALCIUM CARBONATE [Concomitant]
     Route: 048
  11. EVISTA [Concomitant]
     Route: 048
  12. ETIZOLAM [Concomitant]
     Route: 048
  13. MIDODRINE HYDROCHLORIDE [Concomitant]
     Route: 048

REACTIONS (2)
  - BLADDER CANCER [None]
  - THROMBOCYTOPENIA [None]
